FAERS Safety Report 13133654 (Version 2)
Quarter: 2017Q1

REPORT INFORMATION
  Report Type: Spontaneous
  Country: US (occurrence: US)
  Receive Date: 20170120
  Receipt Date: 20170120
  Transmission Date: 20170428
  Serious: Yes (Other)
  Sender: FDA-Public Use
  Company Number: US-ASTRAZENECA-2017SE06014

PATIENT
  Age: 73 Year
  Sex: Male

DRUGS (2)
  1. FARXIGA [Suspect]
     Active Substance: DAPAGLIFLOZIN PROPANEDIOL
     Route: 048
  2. OLAPARIB [Concomitant]
     Active Substance: OLAPARIB

REACTIONS (2)
  - Diabetic ketoacidosis [Unknown]
  - Dehydration [Unknown]
